FAERS Safety Report 25367879 (Version 1)
Quarter: 2025Q2

REPORT INFORMATION
  Report Type: Spontaneous
  Country: US (occurrence: US)
  Receive Date: 20250528
  Receipt Date: 20250528
  Transmission Date: 20250717
  Serious: No
  Sender: GILEAD
  Company Number: US-GILEAD-2025-0714425

PATIENT
  Sex: Female

DRUGS (3)
  1. TRODELVY [Suspect]
     Active Substance: SACITUZUMAB GOVITECAN-HZIY
     Indication: Triple negative breast cancer
     Route: 065
     Dates: start: 202401
  2. TRODELVY [Suspect]
     Active Substance: SACITUZUMAB GOVITECAN-HZIY
     Route: 065
     Dates: start: 202405, end: 20250520
  3. TAXOL [Concomitant]
     Active Substance: PACLITAXEL

REACTIONS (5)
  - Glomerular filtration rate decreased [Unknown]
  - Diarrhoea [Unknown]
  - Feeling abnormal [Unknown]
  - Constipation [Unknown]
  - Full blood count decreased [Unknown]
